FAERS Safety Report 8551646-0 (Version None)
Quarter: 2012Q3

REPORT INFORMATION
  Report Type: 
  Country: None (occurrence: None)
  Receive Date: 20120730
  Receipt Date: 20120727
  Transmission Date: 20120928
  Serious: Yes (Other)
  Sender: FDA-Public Use
  Company Number: SE-BAYER-2012-039009

PATIENT
  Sex: Female

DRUGS (2)
  1. NOVA T [Suspect]
     Dosage: UNK
     Dates: start: 20060101, end: 20110801
  2. YASMIN [Suspect]
     Dosage: UNK

REACTIONS (3)
  - WEIGHT INCREASED [None]
  - ACNE [None]
  - ENDOMETRITIS [None]
